FAERS Safety Report 10079375 (Version 1)
Quarter: 2014Q2

REPORT INFORMATION
  Report Type: Spontaneous
  Country: US (occurrence: None)
  Receive Date: 20140414
  Receipt Date: 20140414
  Transmission Date: 20141212
  Serious: Yes (Other)
  Sender: FDA-Public Use
  Company Number: None

PATIENT
  Age: 70 Year
  Sex: Male
  Weight: 108.86 kg

DRUGS (2)
  1. VASOTEC [Suspect]
  2. E - D - ONE DAY [Concomitant]
     Indication: COUGH

REACTIONS (1)
  - Cough [None]
